FAERS Safety Report 15758571 (Version 2)
Quarter: 2019Q1

REPORT INFORMATION
  Report Type: Report from Study
  Country: BR (occurrence: BR)
  Receive Date: 20181225
  Receipt Date: 20190125
  Transmission Date: 20190417
  Serious: Yes (Hospitalization, Disabling, Other)
  Sender: FDA-Public Use
  Company Number: PHHY2018BR194831

PATIENT
  Age: 34 Year
  Sex: Male
  Weight: 140 kg

DRUGS (8)
  1. COSENTYX [Suspect]
     Active Substance: SECUKINUMAB
     Indication: PSORIATIC ARTHROPATHY
     Dosage: 300 MG, QMO
     Route: 058
     Dates: start: 201803
  2. BUPROPION. [Concomitant]
     Active Substance: BUPROPION
     Indication: ANXIETY
     Dosage: 1 DF, QD
     Route: 048
     Dates: start: 201805, end: 201806
  3. BUPROPION. [Concomitant]
     Active Substance: BUPROPION
     Indication: BLOOD TESTOSTERONE INCREASED
  4. OXANDROLONE. [Concomitant]
     Active Substance: OXANDROLONE
     Indication: BLOOD TESTOSTERONE INCREASED
  5. VITAMIN D [Concomitant]
     Active Substance: CHOLECALCIFEROL
     Indication: ANXIETY
     Dosage: 1 DF, QD
     Route: 048
     Dates: start: 201805, end: 201806
  6. METHOTREXATE. [Concomitant]
     Active Substance: METHOTREXATE
     Indication: PRODUCT USED FOR UNKNOWN INDICATION
     Route: 065
  7. VITAMIN D [Concomitant]
     Active Substance: CHOLECALCIFEROL
     Indication: BLOOD TESTOSTERONE INCREASED
  8. OXANDROLONE. [Concomitant]
     Active Substance: OXANDROLONE
     Indication: ANXIETY
     Dosage: 1 DF, QD
     Route: 048
     Dates: start: 201805, end: 201806

REACTIONS (5)
  - Libido decreased [Not Recovered/Not Resolved]
  - Irritability [Not Recovered/Not Resolved]
  - Agitation [Not Recovered/Not Resolved]
  - Insomnia [Not Recovered/Not Resolved]
  - Weight increased [Unknown]

NARRATIVE: CASE EVENT DATE: 201804
